FAERS Safety Report 6529261-X (Version None)
Quarter: 2009Q4

REPORT INFORMATION
  Report Type: 
  Country: None (occurrence: None)
  Receive Date: 20091204
  Receipt Date: 20091225
  Transmission Date: 20100525
  Serious: Yes (Hospitalization)
  Sender: FDA-Public Use
  Company Number: 2009SP043242

PATIENT
  Age: 52 Year
  Sex: Male
  Weight: 69 kg

DRUGS (6)
  1. TEMODAL [Suspect]
     Indication: GLIOBLASTOMA MULTIFORME
     Dosage: 280 MG; ; PO
     Route: 048
     Dates: start: 20090811, end: 20091117
  2. DEPAKENE [Concomitant]
  3. FERROMIA [Concomitant]
  4. BLOPRESS [Concomitant]
  5. TAKEPRON OD [Concomitant]
  6. BIO-THREE [Concomitant]

REACTIONS (5)
  - CHILLS [None]
  - CONVULSION [None]
  - DYSPNOEA [None]
  - INTERSTITIAL LUNG DISEASE [None]
  - PYREXIA [None]
